FAERS Safety Report 5235448-9 (Version None)
Quarter: 2007Q1

REPORT INFORMATION
  Report Type: 
  Country: None (occurrence: None)
  Receive Date: 20061208
  Receipt Date: 20060706
  Transmission Date: 20070707
  Serious: Yes (Other)
  Sender: FDA-Public Use
  Company Number: 2006UW13986

PATIENT
  Age: 71 Year
  Sex: Female
  Weight: 51.255 kg

DRUGS (2)
  1. CRESTOR [Suspect]
     Indication: HYPERCHOLESTEROLAEMIA
     Dosage: 5 MG QD PO
     Route: 048
  2. ZANTAC [Concomitant]

REACTIONS (2)
  - FATIGUE [None]
  - FLUSHING [None]
